FAERS Safety Report 9373055 (Version 1)
Quarter: 2013Q2

REPORT INFORMATION
  Report Type: Report from Study
  Country: JP (occurrence: JP)
  Receive Date: 20130627
  Receipt Date: 20130627
  Transmission Date: 20140414
  Serious: Yes (Life-Threatening, Other)
  Sender: FDA-Public Use
  Company Number: JP-PFIZER INC-2013185598

PATIENT
  Age: 46 Year
  Sex: Male
  Weight: 79.4 kg

DRUGS (11)
  1. XALKORI [Suspect]
     Indication: NON-SMALL CELL LUNG CANCER
     Dosage: 250 MG, 2X/DAY
     Route: 048
     Dates: start: 20120626, end: 20120709
  2. XALKORI [Suspect]
     Dosage: 250 MG, 2X/DAY
     Route: 048
     Dates: start: 20120715, end: 20120927
  3. GLYCERIN [Suspect]
     Dosage: 60 ML, AS NEEDED
  4. GASTER [Concomitant]
     Dosage: 20 MG, 1X/DAY
     Route: 048
  5. NAIXAN [Concomitant]
     Dosage: 200 MG, 3X/DAY
     Route: 048
  6. LYRICA [Concomitant]
     Dosage: 50 MG, 2X/DAY
     Route: 048
  7. FLUITRAN [Concomitant]
     Dosage: 1 MG, 1X/DAY
     Route: 048
  8. SEROQUEL [Concomitant]
     Dosage: 25 MG, 1X/DAY
     Route: 048
  9. ROHIPNOL [Concomitant]
     Dosage: 1 MG, 1X/DAY
     Route: 048
  10. DEPAS [Concomitant]
     Dosage: 0.5 MG, 1X/DAY
     Route: 048
  11. LENDORMIN [Concomitant]
     Dosage: 0.25 MG, 1X/DAY
     Route: 048

REACTIONS (6)
  - Neutropenia [Recovering/Resolving]
  - Neutropenia [Recovered/Resolved]
  - Syncope [Recovered/Resolved]
  - Hypotension [Unknown]
  - Bradycardia [Recovering/Resolving]
  - Proctitis [Recovered/Resolved]
